FAERS Safety Report 18442315 (Version 2)
Quarter: 2020Q4

REPORT INFORMATION
  Report Type: Report from Study
  Country: IT (occurrence: IT)
  Receive Date: 20201029
  Receipt Date: 20201130
  Transmission Date: 20210114
  Serious: Yes (Other)
  Sender: FDA-Public Use
  Company Number: IT-INCYTE CORPORATION-2020IN010566

PATIENT

DRUGS (7)
  1. JAKAVI [Suspect]
     Active Substance: RUXOLITINIB
     Indication: MYELOFIBROSIS
     Dosage: UNK UNK, QD (40)
     Route: 065
     Dates: start: 20180628, end: 20180719
  2. JAKAVI [Suspect]
     Active Substance: RUXOLITINIB
     Dosage: UNK UNK, QD (20)
     Route: 065
     Dates: start: 20180801, end: 20180812
  3. JAKAVI [Suspect]
     Active Substance: RUXOLITINIB
     Dosage: UNK UNK, QD (15)
     Route: 065
     Dates: start: 20180828, end: 20180910
  4. JAKAVI [Suspect]
     Active Substance: RUXOLITINIB
     Dosage: UNK UNK, QD (15)
     Route: 065
     Dates: start: 20181011, end: 20181023
  5. JAKAVI [Suspect]
     Active Substance: RUXOLITINIB
     Dosage: UNK UNK, QD  (20)
     Route: 065
     Dates: start: 20181024
  6. JAKAVI [Suspect]
     Active Substance: RUXOLITINIB
     Dosage: UNK UNK, QD (34)
     Route: 065
     Dates: start: 20180813, end: 20180820
  7. JAKAVI [Suspect]
     Active Substance: RUXOLITINIB
     Dosage: UNK UNK, QD (30)
     Route: 065
     Dates: start: 20180911, end: 20181010

REACTIONS (1)
  - Hepatotoxicity [Recovered/Resolved]

NARRATIVE: CASE EVENT DATE: 20180821
